FAERS Safety Report 5655813-5 (Version None)
Quarter: 2008Q1

REPORT INFORMATION
  Report Type: 
  Country: None (occurrence: None)
  Receive Date: 20080307
  Receipt Date: 20080226
  Transmission Date: 20080703
  Serious: Yes (Life-Threatening, Hospitalization)
  Sender: FDA-Public Use
  Company Number: JP-PFIZER INC-2008012349

PATIENT
  Sex: Male
  Weight: 49 kg

DRUGS (4)
  1. ZYVOX [Suspect]
     Indication: STAPHYLOCOCCAL INFECTION
     Route: 042
     Dates: start: 20080120, end: 20080203
  2. ZYVOX [Suspect]
     Indication: PNEUMONIA STAPHYLOCOCCAL
  3. FOY [Concomitant]
     Route: 042
     Dates: start: 20080113, end: 20080204
  4. ELASPOL [Concomitant]
     Route: 042
     Dates: start: 20080113, end: 20080204

REACTIONS (2)
  - HISTIOCYTOSIS HAEMATOPHAGIC [None]
  - PANCYTOPENIA [None]
